FAERS Safety Report 8159370-3 (Version None)
Quarter: 2012Q1

REPORT INFORMATION
  Report Type: 
  Country: None (occurrence: None)
  Receive Date: 20120223
  Receipt Date: 20120221
  Transmission Date: 20120608
  Serious: Yes (Other)
  Sender: FDA-Public Use
  Company Number: BE-PFIZER INC-2011290223

PATIENT
  Age: 88 Year
  Sex: Female
  Weight: 56 kg

DRUGS (12)
  1. OMEPRAZOLE [Concomitant]
     Dosage: 20 MG, 1X/DAY
     Route: 048
  2. DURAGESIC-100 [Concomitant]
     Dosage: 50 UG, ALTERNATE DAY
     Route: 048
  3. TOVIAZ [Suspect]
     Indication: URGE INCONTINENCE
     Dosage: 8 MG, 1X/DAY
     Route: 048
     Dates: start: 20110301, end: 20111015
  4. METOPROLOL SUCCINATE [Concomitant]
     Dosage: 100 MG, 1X/DAY
     Route: 048
  5. CLOPIDOGREL [Concomitant]
     Dosage: 75 MG, 1X/DAY
     Route: 048
  6. EFFEXOR XR [Concomitant]
     Dosage: 150 MG, 1X/DAY
     Route: 048
  7. ALLOPURINOL [Concomitant]
     Dosage: 100 MG, 1X/DAY
     Route: 048
  8. MOTENS [Concomitant]
     Dosage: 4 MG, 1X/DAY
     Route: 048
  9. PRAVASTATIN [Concomitant]
     Dosage: 40 MG, 1X/DAY
     Route: 048
  10. LAXIDO [Concomitant]
     Dosage: UNK
     Route: 048
  11. METFORMIN HCL [Concomitant]
     Dosage: 850 MG, 2X/DAY
     Route: 048
  12. ACETAMINOPHEN [Concomitant]
     Dosage: 1 G, 3X/DAY
     Route: 048

REACTIONS (4)
  - DYSPHAGIA [None]
  - ORAL CANDIDIASIS [None]
  - ORAL PAIN [None]
  - WEIGHT DECREASED [None]
